FAERS Safety Report 8564850-2 (Version None)
Quarter: 2012Q3

REPORT INFORMATION
  Report Type: 
  Country: None (occurrence: None)
  Receive Date: 20120803
  Receipt Date: 20120726
  Transmission Date: 20120928
  Serious: Yes (Other)
  Sender: FDA-Public Use
  Company Number: US-ELI_LILLY_AND_COMPANY-US201109002369

PATIENT
  Sex: Female

DRUGS (33)
  1. FORTEO [Suspect]
     Dosage: 20 UG, QD
     Route: 065
  2. MAGNESIUM [Concomitant]
     Dosage: 250 UG, UNKNOWN
  3. CHROMIUM PICOLINATE [Concomitant]
     Dosage: UNK, UNKNOWN
  4. FORTEO [Suspect]
     Dosage: 20 UG, QD
  5. CALCIUM [Concomitant]
     Dosage: UNK, UNKNOWN
  6. CITRICAL [Concomitant]
     Dosage: UNK, UNKNOWN
  7. TEA, GREEN [Concomitant]
  8. NASACORT AQ [Concomitant]
  9. COQ10 [Concomitant]
  10. ACETYLCYSTEINE [Concomitant]
     Indication: NASAL CONGESTION
     Dosage: 10.20 MG, UNKNOWN
  11. NUTRI-JOINT [Concomitant]
  12. FORTEO [Suspect]
     Indication: OSTEOPOROSIS
     Dosage: 20 UG, QD
     Route: 065
     Dates: start: 20110614
  13. ASCORBIC ACID [Concomitant]
  14. FLAXSEED OIL [Concomitant]
     Dosage: 1200 MG, UNKNOWN
  15. QVAR 40 [Concomitant]
  16. LOVAZA [Concomitant]
  17. DIGOXIN [Concomitant]
  18. THEOPHYLLINE [Concomitant]
     Indication: RESPIRATORY DISORDER
     Dosage: 100 MG, PRN
  19. PERCOCET [Concomitant]
     Indication: PAIN
     Dosage: UNK, UNKNOWN
  20. VITAMIN D [Concomitant]
     Dosage: UNK, UNKNOWN
  21. CALCITRIOL [Concomitant]
     Dosage: UNK UNK, UNKNOWN
  22. RESVERATROL [Concomitant]
  23. BUDESONIDE [Concomitant]
     Dosage: UNK, PRN
  24. ANALGESICS [Concomitant]
  25. PREDNISONE [Concomitant]
  26. FORTEO [Suspect]
     Dosage: 20 UG, QD
     Route: 065
  27. B-50 [Concomitant]
     Dosage: UNK, UNKNOWN
  28. GINKGO [Concomitant]
  29. NEXIUM [Concomitant]
     Dosage: 40 MG, QD
  30. MULTI-VITAMINS [Concomitant]
  31. VITAMIN D [Concomitant]
  32. LUTEIN [Concomitant]
  33. ALBUTEROL [Concomitant]

REACTIONS (13)
  - OFF LABEL USE [None]
  - DRUG DOSE OMISSION [None]
  - MALAISE [None]
  - BRONCHITIS [None]
  - GAIT DISTURBANCE [None]
  - HEADACHE [None]
  - BACK DISORDER [None]
  - NECK PAIN [None]
  - EAR PAIN [None]
  - NASOPHARYNGITIS [None]
  - DYSPNOEA [None]
  - OROPHARYNGEAL PAIN [None]
  - CHRONIC OBSTRUCTIVE PULMONARY DISEASE [None]
